FAERS Safety Report 22034518 (Version 1)
Quarter: 2023Q1

REPORT INFORMATION
  Report Type: Spontaneous
  Country: US (occurrence: None)
  Receive Date: 20230222
  Receipt Date: 20230222
  Transmission Date: 20230418
  Serious: Yes (Death)
  Sender: FDA-Public Use
  Company Number: None

PATIENT
  Age: 79 Year
  Sex: Male
  Weight: 72 kg

DRUGS (2)
  1. TESSALON [Suspect]
     Active Substance: BENZONATATE
     Indication: Cough
     Dosage: FREQUENCY : EVERY 4 HOURS;?
     Route: 048
     Dates: start: 20220429, end: 20220501
  2. LEVOPHED [Suspect]
     Active Substance: NOREPINEPHRINE BITARTRATE

REACTIONS (8)
  - Documented hypersensitivity to administered product [None]
  - Hypotension [None]
  - Seizure [None]
  - Tremor [None]
  - Cardiac arrest [None]
  - Refusal of treatment by patient [None]
  - Anaphylactic reaction [None]
  - Multiple organ dysfunction syndrome [None]

NARRATIVE: CASE EVENT DATE: 20220430
